FAERS Safety Report 9799861 (Version 2)
Quarter: 2014Q1

REPORT INFORMATION
  Report Type: Spontaneous
  Country: US (occurrence: US)
  Receive Date: 20140106
  Receipt Date: 20140228
  Transmission Date: 20141002
  Serious: Yes (Hospitalization)
  Sender: FDA-Public Use
  Company Number: US-GLAXOSMITHKLINE-A1055264A

PATIENT
  Age: 62 Year
  Sex: Female

DRUGS (1)
  1. ADVAIR [Suspect]
     Indication: ASTHMA
     Route: 065
     Dates: start: 20100128

REACTIONS (6)
  - Bronchitis [Unknown]
  - Wheezing [Unknown]
  - Cough [Unknown]
  - Hyperhidrosis [Unknown]
  - Eye operation [Unknown]
  - Neck surgery [Unknown]
